FAERS Safety Report 6465950-3 (Version None)
Quarter: 2009Q4

REPORT INFORMATION
  Report Type: 
  Country: None (occurrence: None)
  Receive Date: 20091202
  Receipt Date: 20091123
  Transmission Date: 20100525
  Serious: Yes (Hospitalization)
  Sender: FDA-Public Use
  Company Number: US-BIOGENIDEC-2009BI038895

PATIENT
  Age: 46 Year
  Sex: Female

DRUGS (4)
  1. AVONEX [Suspect]
     Indication: MULTIPLE SCLEROSIS
     Route: 030
     Dates: start: 20021104, end: 20051107
  2. AVONEX [Suspect]
     Route: 030
     Dates: start: 20051201, end: 20071231
  3. AVONEX [Suspect]
     Route: 030
     Dates: start: 20090306, end: 20090528
  4. AVONEX [Suspect]
     Route: 030
     Dates: start: 20091112

REACTIONS (1)
  - PITUITARY TUMOUR BENIGN [None]
